FAERS Safety Report 13002852 (Version 1)
Quarter: 2016Q4

REPORT INFORMATION
  Report Type: Spontaneous
  Country: US (occurrence: US)
  Receive Date: 20161206
  Receipt Date: 20161206
  Transmission Date: 20170207
  Serious: No
  Sender: FDA-Public Use
  Company Number: US-JNJFOC-20161116015

PATIENT
  Sex: Male

DRUGS (1)
  1. TOPAMAX [Suspect]
     Active Substance: TOPIRAMATE
     Indication: AFFECTIVE DISORDER
     Route: 048
     Dates: start: 2008, end: 200902

REACTIONS (4)
  - Off label use [Unknown]
  - Product use issue [Unknown]
  - Paraesthesia [Unknown]
  - Anger [Unknown]

NARRATIVE: CASE EVENT DATE: 2008
